FAERS Safety Report 22537006 (Version 1)
Quarter: 2023Q2

REPORT INFORMATION
  Report Type: Spontaneous
  Country: US (occurrence: US)
  Receive Date: 20230608
  Receipt Date: 20230608
  Transmission Date: 20230721
  Serious: Yes (Other)
  Sender: FDA-Public Use
  Company Number: US-TEVA-2023-US-2893234

PATIENT
  Age: 35 Year
  Sex: Female

DRUGS (4)
  1. BACLOFEN [Suspect]
     Active Substance: BACLOFEN
     Indication: Trigeminal neuralgia
     Route: 065
  2. GABAPENTIN [Suspect]
     Active Substance: GABAPENTIN
     Indication: Trigeminal neuralgia
     Dosage: 600 MILLIGRAM DAILY;
     Route: 065
  3. FOSPHENYTOIN [Suspect]
     Active Substance: FOSPHENYTOIN
     Indication: Trigeminal neuralgia
     Route: 042
  4. KETAMINE [Suspect]
     Active Substance: KETAMINE
     Indication: Trigeminal neuralgia
     Route: 042

REACTIONS (2)
  - Hallucination [Unknown]
  - Drug ineffective [Unknown]
